FAERS Safety Report 13401746 (Version 1)
Quarter: 2017Q2

REPORT INFORMATION
  Report Type: Report from Study
  Country: DO (occurrence: DO)
  Receive Date: 20170404
  Receipt Date: 20170404
  Transmission Date: 20170830
  Serious: Yes (Other)
  Sender: FDA-Public Use
  Company Number: PHHY2017DO034912

PATIENT
  Age: 59 Year
  Sex: Female

DRUGS (2)
  1. EXFORGE [Suspect]
     Active Substance: AMLODIPINE BESYLATE\VALSARTAN
     Indication: HYPERTENSION
     Dosage: 1 DF (10 MG AMLODIPINE/320 MG VALSARTAN) QD
     Route: 048
  2. GALVUS MET [Suspect]
     Active Substance: METFORMIN HYDROCHLORIDE\VILDAGLIPTIN
     Indication: DIABETES MELLITUS
     Dosage: 1 DF, QD (METFORMIN 850 MG, VILDAGLIPTIN 50 MG)
     Route: 048

REACTIONS (2)
  - Diabetes mellitus inadequate control [Recovering/Resolving]
  - Blood glucose increased [Recovering/Resolving]
